FAERS Safety Report 13853324 (Version 2)
Quarter: 2017Q3

REPORT INFORMATION
  Report Type: Report from Study
  Country: DE (occurrence: DE)
  Receive Date: 20170810
  Receipt Date: 20170928
  Transmission Date: 20171127
  Serious: Yes (Other)
  Sender: FDA-Public Use
  Company Number: PHHY2016DE003003

PATIENT
  Age: 51 Year
  Sex: Male
  Weight: 70 kg

DRUGS (2)
  1. GILENYA [Suspect]
     Active Substance: FINGOLIMOD HYDROCHLORIDE
     Indication: MULTIPLE SCLEROSIS
     Dosage: 0.5 MG, QD
     Route: 048
     Dates: start: 20140825
  2. PREDNITOP [Concomitant]
     Indication: PRODUCT USED FOR UNKNOWN INDICATION
     Dosage: UNK
     Route: 065
     Dates: start: 20150115, end: 20150215

REACTIONS (8)
  - Alanine aminotransferase increased [Unknown]
  - Lymphopenia [Recovered/Resolved]
  - Nasopharyngitis [Recovered/Resolved]
  - Lymphocyte percentage decreased [Unknown]
  - Asteatosis [Not Recovered/Not Resolved]
  - Eczema [Recovered/Resolved]
  - White blood cell count decreased [Unknown]
  - Back pain [Unknown]

NARRATIVE: CASE EVENT DATE: 20150115
